FAERS Safety Report 4389869-7 (Version None)
Quarter: 2004Q2

REPORT INFORMATION
  Report Type: 
  Country: None (occurrence: None)
  Receive Date: 20040630
  Receipt Date: 20040630
  Transmission Date: 20050107
  Serious: Yes (Death)
  Sender: FDA-Public Use
  Company Number: None

PATIENT
  Age: 59 Year
  Sex: Female
  Weight: 90.7194 kg

DRUGS (2)
  1. REBETOL [Suspect]
     Indication: HEPATITIS C
     Dosage: 1200 MG DAY AURICULAR
     Route: 001
     Dates: start: 20021023, end: 20030122
  2. PEG-INTRON [Suspect]
     Indication: HEPATITIS C
     Dosage: 300 MCG WEEK INTRAMUSCULAR
     Route: 030
     Dates: start: 20021023, end: 20030122

REACTIONS (2)
  - GLIOBLASTOMA [None]
  - NEOPLASM RECURRENCE [None]
